FAERS Safety Report 10466405 (Version 1)
Quarter: 2014Q3

REPORT INFORMATION
  Report Type: Spontaneous
  Country: BE (occurrence: None)
  Receive Date: 20140918
  Receipt Date: 20140918
  Transmission Date: 20150326
  Serious: Yes (Death)
  Sender: FDA-Public Use
  Company Number: FK201403689

PATIENT
  Age: 67 Year
  Sex: Male

DRUGS (6)
  1. EMITRICITABINE [Concomitant]
  2. ABACAVIR [Concomitant]
     Active Substance: ABACAVIR
  3. TENOFOVIR [Concomitant]
     Active Substance: TENOFOVIR
  4. LAMIIVUDINE [Concomitant]
  5. METHYLPREDNISOLONE (MANUFACTURER UNKNOWN) (METHYLPREDNISOLONE SODIUM SUCCINATE) (METHYLPREDNISOLONE SODIUM SUCCINATE) [Suspect]
     Active Substance: METHYLPREDNISOLONE
     Indication: NEPHROPATHY
  6. LOPINAVIR / RITONAVIR (KALETRA) [Concomitant]

REACTIONS (12)
  - Immune reconstitution inflammatory syndrome [None]
  - Renal tubular necrosis [None]
  - Lung infection [None]
  - Dialysis [None]
  - Aspergillus infection [None]
  - Enterococcal infection [None]
  - Renal failure acute [None]
  - Multi-organ failure [None]
  - Toxicity to various agents [None]
  - Pericardial effusion [None]
  - Cytomegalovirus colitis [None]
  - Tubulointerstitial nephritis [None]
